FAERS Safety Report 11938580 (Version 3)
Quarter: 2016Q2

REPORT INFORMATION
  Report Type: Report from Study
  Country: DE (occurrence: DE)
  Receive Date: 20160122
  Receipt Date: 20160512
  Transmission Date: 20160815
  Serious: Yes (Hospitalization)
  Sender: FDA-Public Use
  Company Number: DE-AMGEN-DEUNI2016007351

PATIENT
  Age: 19 Year
  Sex: Male
  Weight: 76 kg

DRUGS (2)
  1. ETANERCEPT [Suspect]
     Active Substance: ETANERCEPT
     Indication: PSORIATIC ARTHROPATHY
     Dosage: 50 MG, QWK
     Route: 058
     Dates: start: 20150914
  2. MEDROL [Suspect]
     Active Substance: METHYLPREDNISOLONE
     Indication: PSORIATIC ARTHROPATHY
     Dosage: 8 MG, UNK
     Route: 048
     Dates: start: 201412

REACTIONS (2)
  - Nasal abscess [Recovered/Resolved]
  - Nasal septum haematoma [Recovered/Resolved]

NARRATIVE: CASE EVENT DATE: 20150929
